FAERS Safety Report 19174179 (Version 1)
Quarter: 2021Q2

REPORT INFORMATION
  Report Type: Other
  Country: GB (occurrence: GB)
  Receive Date: 20210423
  Receipt Date: 20210423
  Transmission Date: 20210717
  Serious: Yes (Other)
  Sender: FDA-Public Use
  Company Number: GB-ROCHE-2811456

PATIENT
  Sex: Female

DRUGS (1)
  1. ROACTEMRA [Suspect]
     Active Substance: TOCILIZUMAB
     Indication: RHEUMATOID ARTHRITIS
     Route: 058
     Dates: start: 2021

REACTIONS (5)
  - Abdominal pain upper [Unknown]
  - Rash [Unknown]
  - Dyspnoea [Unknown]
  - Eye disorder [Unknown]
  - Asthma [Unknown]
